FAERS Safety Report 10350862 (Version 2)
Quarter: 2014Q3

REPORT INFORMATION
  Report Type: Report from Study
  Country: PH (occurrence: PH)
  Receive Date: 20140730
  Receipt Date: 20140730
  Transmission Date: 20150326
  Serious: Yes (Life-Threatening, Hospitalization, Other)
  Sender: FDA-Public Use
  Company Number: PHHO2011PH10745

PATIENT
  Age: 57 Year
  Sex: Male
  Weight: 66.5 kg

DRUGS (21)
  1. ENALAPRIL [Suspect]
     Active Substance: ENALAPRIL
     Dosage: 10 MG, BID
     Route: 048
     Dates: start: 20110623
  2. CARNICOR [Concomitant]
     Indication: CARDIAC FAILURE CHRONIC
  3. SIMVASTATIN. [Concomitant]
     Active Substance: SIMVASTATIN
     Indication: BLOOD CHOLESTEROL DECREASED
     Dosage: 20 MG, QD
     Dates: start: 20110607
  4. IMDUR [Concomitant]
     Active Substance: ISOSORBIDE MONONITRATE
     Indication: CARDIAC FAILURE CHRONIC
     Dosage: 30 MG (TAB), QD
     Dates: start: 20120508
  5. GLIMEPIRIDE W/METFORMIN [Concomitant]
     Indication: TYPE 2 DIABETES MELLITUS
     Dosage: 2 G / 500 MG (TAB), QD
     Dates: start: 200906
  6. CARNICOR [Concomitant]
     Dosage: 50 MG (TAB), QD
     Route: 048
     Dates: start: 201009
  7. ALDACTONE [Concomitant]
     Active Substance: SPIRONOLACTONE
     Indication: CARDIAC FAILURE CHRONIC
     Dosage: 25 MG (TAB), QD, MNF
     Dates: start: 20111021
  8. METFORMIN [Concomitant]
     Active Substance: METFORMIN HYDROCHLORIDE
     Dosage: 500 MG, UNK
     Route: 048
     Dates: start: 200406, end: 20120525
  9. ENALAPRIL [Suspect]
     Active Substance: ENALAPRIL
     Indication: CARDIAC FAILURE CHRONIC
     Dosage: 10 MG, BID
     Route: 048
     Dates: start: 20110525, end: 20110620
  10. PLAVIX [Concomitant]
     Active Substance: CLOPIDOGREL BISULFATE
     Indication: CARDIAC FAILURE CHRONIC
     Dosage: 75 MG, QD
     Dates: start: 201009
  11. SPIRONOLACTONE. [Concomitant]
     Active Substance: SPIRONOLACTONE
     Dosage: 1 DF (25/20 UG) QD
     Route: 048
     Dates: start: 20111021, end: 20120525
  12. PRASUGREL [Suspect]
     Active Substance: PRASUGREL
     Dosage: 10 MG, OD
     Dates: start: 20120526
  13. LIPANTHYL [Concomitant]
     Active Substance: FENOFIBRATE
     Indication: CARDIAC FAILURE CHRONIC
     Dosage: 145 MG, QD (25-5-11)
     Dates: start: 20110525
  14. ACETYLSALICYLIC ACID [Suspect]
     Active Substance: ASPIRIN
     Indication: CARDIAC FAILURE CHRONIC
     Dosage: 80 MG, QD
     Dates: start: 201009, end: 20110620
  15. PRASUGREL [Suspect]
     Active Substance: PRASUGREL
     Indication: CARDIAC FAILURE CHRONIC
     Dosage: 10 MG, OD
     Dates: start: 20120508, end: 20120525
  16. PROTON PUMP INHIBITORS [Concomitant]
     Active Substance: UNSPECIFIED INGREDIENT
     Dosage: UNK
  17. CARVEDILOL. [Concomitant]
     Active Substance: CARVEDILOL
     Dosage: 6.25 MG, UNK
     Route: 048
     Dates: start: 201009, end: 20120525
  18. EFFIENT [Concomitant]
     Active Substance: PRASUGREL HYDROCHLORIDE
     Indication: CARDIAC FAILURE CHRONIC
     Dosage: 25 MG, (TAB) QD
     Route: 048
     Dates: start: 20120508, end: 20120525
  19. PLATELET AGGREGATION INHIBITORS [Concomitant]
     Active Substance: UNSPECIFIED INGREDIENT
     Dosage: UNK
  20. DILATREND [Concomitant]
     Active Substance: CARVEDILOL
     Indication: CARDIAC FAILURE CHRONIC
     Dosage: 6.25 MG (TAB), BID
     Route: 048
     Dates: start: 201009
  21. CRESTOR [Concomitant]
     Active Substance: ROSUVASTATIN CALCIUM
     Indication: CARDIAC FAILURE CHRONIC
     Dosage: 10 MG (TAB), QD
     Dates: start: 20120508

REACTIONS (1)
  - Upper gastrointestinal haemorrhage [Recovered/Resolved]

NARRATIVE: CASE EVENT DATE: 20110621
